FAERS Safety Report 18333047 (Version 1)
Quarter: 2020Q3

REPORT INFORMATION
  Report Type: Report from Study
  Country: None (occurrence: DE)
  Receive Date: 20200930
  Receipt Date: 20200930
  Transmission Date: 20201103
  Serious: Yes (Hospitalization, Other)
  Sender: FDA-Public Use
  Company Number: DE-ABBVIE-20K-062-3579484-00

PATIENT
  Age: 60 Year
  Sex: Male
  Weight: 70 kg

DRUGS (5)
  1. HUMIRA [Suspect]
     Active Substance: ADALIMUMAB
     Indication: PSORIATIC ARTHROPATHY
  2. FOLSAN [Concomitant]
     Active Substance: FOLIC ACID
     Indication: PRODUCT USED FOR UNKNOWN INDICATION
  3. INNOHEP [Concomitant]
     Active Substance: TINZAPARIN SODIUM
     Indication: THROMBOSIS PROPHYLAXIS
     Route: 058
     Dates: start: 202009
  4. FENISTIL [Concomitant]
     Active Substance: DIMETHINDENE
     Indication: PRURITUS
     Dosage: UNIT DOSE: 2 DRAGEE
  5. HUMIRA [Suspect]
     Active Substance: ADALIMUMAB
     Indication: PSORIASIS
     Route: 058
     Dates: start: 20190320, end: 20200902

REACTIONS (21)
  - Red blood cell sedimentation rate increased [Unknown]
  - Hepatic steatosis [Unknown]
  - Folate deficiency [Unknown]
  - Antinuclear antibody increased [Unknown]
  - Blister [Unknown]
  - Tooth disorder [Unknown]
  - Haematocrit decreased [Unknown]
  - Red blood cell count decreased [Unknown]
  - Sensitisation [Unknown]
  - Hyperuricaemia [Unknown]
  - Drug ineffective [Unknown]
  - Fluid retention [Unknown]
  - Neutrophil count increased [Unknown]
  - Emphysema [Unknown]
  - Skin plaque [Unknown]
  - Nail disorder [Unknown]
  - Psoriasis [Recovered/Resolved]
  - Monocyte count increased [Unknown]
  - C-reactive protein increased [Unknown]
  - Skin exfoliation [Unknown]
  - Haemoglobin decreased [Unknown]

NARRATIVE: CASE EVENT DATE: 20200907
